FAERS Safety Report 6371077-1 (Version None)
Quarter: 2009Q3

REPORT INFORMATION
  Report Type: 
  Country: None (occurrence: None)
  Receive Date: 20090923
  Receipt Date: 20090910
  Transmission Date: 20100115
  Serious: Yes (Other)
  Sender: FDA-Public Use
  Company Number: PHHY2009BR39052

PATIENT
  Age: 89 Year
  Sex: Female
  Weight: 90 kg

DRUGS (7)
  1. ELIDEL [Suspect]
     Dosage: 1% CREAM, ONCE DAILY
     Route: 061
  2. VASOPRIL [Concomitant]
     Indication: BLOOD PRESSURE
     Dosage: 20/12.5 MG, ONE TABLET DAILY FOR 8 OR 9 YEARS
     Route: 048
  3. ANCORON [Concomitant]
     Indication: CARDIAC DISORDER
     Dosage: 100 MG ONE TABLET EVERY OTHER DAY
     Route: 048
  4. NOODIPINA [Concomitant]
     Dosage: 30 MG, BID
     Route: 048
  5. PHYSIOGEL/FISIOGEL [Concomitant]
     Dosage: ONCE DAILY AFTER BATH AND BODY LOTION  TO PROTECT THE SKIN
     Route: 061
  6. HIXIZINE [Concomitant]
     Indication: HYPERSENSITIVITY
     Dosage: 25 MG (ONE TABLET)
     Route: 048
     Dates: start: 20090909
  7. VOLTAFLEX [Concomitant]
     Indication: SPINAL DISORDER
     Dosage: ONE TABLET WHEN NECESSARY
     Route: 048

REACTIONS (6)
  - CONDITION AGGRAVATED [None]
  - PRURITUS [None]
  - SKIN CANCER [None]
  - SKIN DISORDER [None]
  - SKIN IRRITATION [None]
  - SWELLING [None]
